FAERS Safety Report 14612594 (Version 1)
Quarter: 2018Q1

REPORT INFORMATION
  Report Type: Spontaneous
  Country: US (occurrence: US)
  Receive Date: 20180308
  Receipt Date: 20180308
  Transmission Date: 20180509
  Serious: No
  Sender: FDA-Public Use
  Company Number: US-ROCHE-2084208

PATIENT
  Age: 30 Year
  Sex: Male
  Weight: 79.45 kg

DRUGS (6)
  1. OCREVUS [Suspect]
     Active Substance: OCRELIZUMAB
     Dosage: SECOND OCREVUS INFUSION ;ONGOING: YES
     Route: 041
     Dates: start: 201801
  2. OCREVUS [Suspect]
     Active Substance: OCRELIZUMAB
     Indication: MULTIPLE SCLEROSIS RELAPSE
     Dosage: FIRST OCREVUS INFUSION ;ONGOING: NO
     Route: 041
     Dates: start: 20171215, end: 20171215
  3. BENADRYL [Concomitant]
     Active Substance: DIPHENHYDRAMINE HYDROCHLORIDE
     Indication: PREMEDICATION
     Dosage: ONGOING: YES
     Route: 048
     Dates: start: 20171215
  4. SOLU-MEDROL [Concomitant]
     Active Substance: METHYLPREDNISOLONE SODIUM SUCCINATE
     Indication: PREMEDICATION
     Dosage: ADMINISTERED PRIOR TO EACH OCREVUS INFUSION ;ONGOING: YES
     Route: 042
     Dates: start: 20171215
  5. BENADRYL [Concomitant]
     Active Substance: DIPHENHYDRAMINE HYDROCHLORIDE
     Dosage: EXTRA DOSE DURING FIRST NFUSION ;ONGOING: NO
     Route: 048
     Dates: start: 20171215, end: 20171215
  6. BENADRYL [Concomitant]
     Active Substance: DIPHENHYDRAMINE HYDROCHLORIDE
     Dosage: ADVISED TO TAKE THE NIGHT PRIOR TO OCREVUS
     Route: 048
     Dates: start: 201801, end: 201801

REACTIONS (4)
  - Infusion related reaction [Recovered/Resolved]
  - Limb discomfort [Not Recovered/Not Resolved]
  - Gastroenteritis viral [Recovered/Resolved]
  - Fatigue [Recovered/Resolved]

NARRATIVE: CASE EVENT DATE: 20171215
